FAERS Safety Report 4666809-4 (Version None)
Quarter: 2005Q2

REPORT INFORMATION
  Report Type: 
  Country: None (occurrence: None)
  Receive Date: 20050519
  Receipt Date: 20050516
  Transmission Date: 20051028
  Serious: Yes (Other)
  Sender: FDA-Public Use
  Company Number: ES-MERCK-0505ESP00023

PATIENT
  Age: 45 Year
  Sex: Female
  Weight: 38 kg

DRUGS (6)
  1. SINGULAIR [Suspect]
     Indication: ASTHMA
     Route: 048
     Dates: start: 20030301, end: 20050218
  2. LEVOFLOXACIN [Suspect]
     Indication: BRONCHITIS ACUTE
     Route: 048
     Dates: start: 20050126, end: 20050205
  3. THEOPHYLLINE [Concomitant]
     Indication: ASTHMA
     Route: 048
  4. FOSAMAX [Concomitant]
     Indication: OSTEOPOROSIS
     Route: 048
  5. DESLORATADINE [Concomitant]
     Indication: NASAL POLYPS
     Route: 048
  6. METHYLPREDNISOLONE [Concomitant]
     Indication: ASTHMA
     Route: 048

REACTIONS (1)
  - HEPATITIS [None]
